FAERS Safety Report 12543581 (Version 1)
Quarter: 2016Q3

REPORT INFORMATION
  Report Type: Spontaneous
  Country: US (occurrence: None)
  Receive Date: 20160708
  Receipt Date: 20160708
  Transmission Date: 20161109
  Serious: Yes (Other)
  Sender: FDA-Public Use
  Company Number: None

PATIENT
  Age: 23 Year
  Sex: Female
  Weight: 68.04 kg

DRUGS (15)
  1. LAMICTAL [Concomitant]
     Active Substance: LAMOTRIGINE
  2. BUPROPION. [Concomitant]
     Active Substance: BUPROPION
  3. SWISS KRISS [Concomitant]
  4. PACEMAKER [Concomitant]
  5. NORTRIPTYLINE [Concomitant]
     Active Substance: NORTRIPTYLINE
  6. CALCIUM/MAGNESIUM [Concomitant]
  7. FISH OIL [Concomitant]
     Active Substance: FISH OIL
  8. ZINC [Concomitant]
     Active Substance: ZINC\ZINC CHLORIDE
  9. TEA [Concomitant]
     Active Substance: TEA LEAF
  10. DILTIA XR [Concomitant]
  11. SUPER B-COMPLEX [Concomitant]
  12. PANTOPRAZOLE [Concomitant]
     Active Substance: PANTOPRAZOLE SODIUM
  13. SPRINTEC [Concomitant]
     Active Substance: ETHINYL ESTRADIOL\NORGESTIMATE
  14. DOMPERIDONE [Concomitant]
     Active Substance: DOMPERIDONE
  15. ZECUITY [Suspect]
     Active Substance: SUMATRIPTAN SUCCINATE
     Indication: MIGRAINE
     Dosage: 2 PATCH(ES) AS NEEDED

REACTIONS (5)
  - Application site pain [None]
  - Application site burn [None]
  - Application site rash [None]
  - Application site bruise [None]
  - Application site scar [None]

NARRATIVE: CASE EVENT DATE: 20160108
